FAERS Safety Report 4324610-5 (Version None)
Quarter: 2004Q1

REPORT INFORMATION
  Report Type: 
  Country: None (occurrence: None)
  Receive Date: 20040323
  Receipt Date: 20040312
  Transmission Date: 20041129
  Serious: Yes (Disabling)
  Sender: FDA-Public Use
  Company Number: GBWYE568109FEB04

PATIENT
  Age: 40 Year
  Sex: Female

DRUGS (7)
  1. EFEXOR (VENLAFAXINE HYDROCHLORIDE, TABLET) [Suspect]
     Indication: DEPRESSION
     Dosage: 37.5 MG 1X PER 1 DAY; ORAL (SEE IMAGE)
     Route: 048
     Dates: start: 20040109, end: 20040112
  2. EFEXOR (VENLAFAXINE HYDROCHLORIDE, TABLET) [Suspect]
     Indication: DEPRESSION
     Dosage: 37.5 MG 1X PER 1 DAY; ORAL (SEE IMAGE)
     Route: 048
     Dates: start: 20040113, end: 20040113
  3. EFEXOR (VENLAFAXINE HYDROCHLORIDE, TABLET) [Suspect]
     Indication: DEPRESSION
     Dosage: 37.5 MG 1X PER 1 DAY; ORAL (SEE IMAGE)
     Route: 048
     Dates: start: 20040114, end: 20040119
  4. EFEXOR (VENLAFAXINE HYDROCHLORIDE, TABLET) [Suspect]
     Indication: DEPRESSION
     Dosage: 37.5 MG 1X PER 1 DAY; ORAL (SEE IMAGE)
     Route: 048
     Dates: start: 20040120, end: 20040130
  5. EFEXOR (VENLAFAXINE HYDROCHLORIDE, TABLET) [Suspect]
     Indication: DEPRESSION
     Dosage: 37.5 MG 1X PER 1 DAY; ORAL (SEE IMAGE)
     Route: 048
     Dates: start: 20040131, end: 20040208
  6. EFEXOR (VENLAFAXINE HYDROCHLORIDE, TABLET) [Suspect]
     Indication: DEPRESSION
     Dosage: 37.5 MG 1X PER 1 DAY; ORAL (SEE IMAGE)
     Route: 048
     Dates: start: 20040209, end: 20040219
  7. CIPRAMIL (CITALOPRAM HYDROBROMIDE) [Concomitant]

REACTIONS (22)
  - ABNORMAL DREAMS [None]
  - APHONIA [None]
  - ASTHENIA [None]
  - DRUG WITHDRAWAL SYNDROME [None]
  - DYSTONIA [None]
  - HEADACHE [None]
  - HYPERHIDROSIS [None]
  - HYPERREFLEXIA [None]
  - HYPERTONIA [None]
  - HYPOMANIA [None]
  - MOOD SWINGS [None]
  - MUSCLE RIGIDITY [None]
  - MUSCLE SPASMS [None]
  - MUSCULAR WEAKNESS [None]
  - MUSCULOSKELETAL STIFFNESS [None]
  - NAUSEA [None]
  - PARAESTHESIA [None]
  - PARALYSIS [None]
  - RESTLESSNESS [None]
  - SENSATION OF HEAVINESS [None]
  - TREMOR [None]
  - VOMITING [None]
